FAERS Safety Report 9395028 (Version 2)
Quarter: 2013Q3

REPORT INFORMATION
  Report Type: Spontaneous
  Country: JP (occurrence: JP)
  Receive Date: 20130711
  Receipt Date: 20130730
  Transmission Date: 20140515
  Serious: Yes (Other)
  Sender: FDA-Public Use
  Company Number: JP-UCBSA-089587

PATIENT
  Age: 96 Year
  Sex: Male

DRUGS (5)
  1. NEUPRO [Suspect]
     Indication: PARKINSON^S DISEASE
     Dosage: DOSE- 4 MG/ 24 HOUR
     Route: 061
     Dates: start: 20130517
  2. URSODEOXYCHOLIC ACID [Concomitant]
     Dosage: 6 TABLET
     Dates: start: 199906
  3. ETIZOLAM [Concomitant]
     Dosage: DAILY DOSE: 0.5 MG
     Dates: start: 201008
  4. TORASEMIDE [Concomitant]
     Dosage: DAILY DOSE: 6 MG
     Dates: start: 201101
  5. OLMESARTAN MEDOXOMIL [Concomitant]
     Dosage: DAILY DOSE: 10 MG
     Dates: start: 201108

REACTIONS (6)
  - Bradycardia [Recovered/Resolved]
  - Delusion [Recovered/Resolved]
  - Confusional state [Recovered/Resolved]
  - Hypotension [Recovered/Resolved]
  - Dyskinesia [Recovered/Resolved]
  - Asthenia [Recovered/Resolved]
